FAERS Safety Report 23551508 (Version 2)
Quarter: 2025Q2

REPORT INFORMATION
  Report Type: Spontaneous
  Country: GB (occurrence: GB)
  Receive Date: 20240222
  Receipt Date: 20250430
  Transmission Date: 20250716
  Serious: Yes (Other)
  Sender: RANBAXY
  Company Number: GB-SUN PHARMACEUTICAL INDUSTRIES LTD-2024R1-431989

PATIENT
  Age: 82 Year
  Sex: Male

DRUGS (3)
  1. ACITRETIN [Suspect]
     Active Substance: ACITRETIN
     Indication: Pityriasis rubra pilaris
     Dosage: 50 MILLIGRAM, QD
     Route: 048
  2. ACITRETIN [Suspect]
     Active Substance: ACITRETIN
     Dosage: 10 MILLIGRAM, QD
     Route: 048
  3. METHOTREXATE [Suspect]
     Active Substance: METHOTREXATE
     Indication: Pityriasis rubra pilaris
     Route: 058

REACTIONS (3)
  - Therapy non-responder [Unknown]
  - Condition aggravated [Recovered/Resolved]
  - Oedema peripheral [Unknown]
